FAERS Safety Report 7751494-5 (Version None)
Quarter: 2011Q3

REPORT INFORMATION
  Report Type: 
  Country: None (occurrence: None)
  Receive Date: 20110914
  Receipt Date: 20110901
  Transmission Date: 20111222
  Serious: Yes (Hospitalization)
  Sender: FDA-Public Use
  Company Number: PHHO2011US14852

PATIENT
  Sex: Male
  Weight: 66.9 kg

DRUGS (4)
  1. TACROLIMUS [Concomitant]
  2. MYFORTIC [Concomitant]
  3. PREDNISONE [Concomitant]
  4. MYFORTIC [Suspect]
     Indication: RENAL TRANSPLANT
     Dosage: 360 MG, TID
     Route: 048
     Dates: end: 20101104

REACTIONS (7)
  - DEHYDRATION [None]
  - METABOLIC ACIDOSIS [None]
  - HYPERKALAEMIA [None]
  - DIARRHOEA [None]
  - THROMBOCYTOPENIA [None]
  - DYSPNOEA EXERTIONAL [None]
  - TROPONIN INCREASED [None]
